FAERS Safety Report 20845386 (Version 1)
Quarter: 2022Q2

REPORT INFORMATION
  Report Type: Spontaneous
  Country: US (occurrence: None)
  Receive Date: 20220518
  Receipt Date: 20220518
  Transmission Date: 20220720
  Serious: Yes (Hospitalization)
  Sender: FDA-Public Use
  Company Number: None

PATIENT
  Age: 37 Year
  Sex: Female
  Weight: 89 kg

DRUGS (1)
  1. METHAMPHETAMINE HYDROCHLORIDE [Suspect]
     Active Substance: METHAMPHETAMINE HYDROCHLORIDE

REACTIONS (5)
  - Unresponsive to stimuli [None]
  - Vomiting [None]
  - Aspiration [None]
  - Overdose [None]
  - Drug screen positive [None]

NARRATIVE: CASE EVENT DATE: 20220428
